FAERS Safety Report 4412445-4 (Version None)
Quarter: 2004Q3

REPORT INFORMATION
  Report Type: 
  Country: None (occurrence: None)
  Receive Date: 20040730
  Receipt Date: 20040623
  Transmission Date: 20050211
  Serious: Yes (Hospitalization)
  Sender: FDA-Public Use
  Company Number: JP-MERCK-0406USA02451

PATIENT
  Age: 47 Year
  Sex: Male

DRUGS (19)
  1. PL GRAN [Suspect]
     Indication: NASOPHARYNGITIS
     Route: 048
     Dates: start: 20040612, end: 20040614
  2. AKINETON [Suspect]
     Indication: ENCEPHALITIS HERPES
     Route: 048
     Dates: start: 20040503, end: 20040617
  3. TEGRETOL [Suspect]
     Indication: ENCEPHALITIS HERPES
     Route: 048
     Dates: start: 20040527, end: 20040614
  4. TEGRETOL [Suspect]
     Route: 048
     Dates: start: 20040501, end: 20040526
  5. PEPCID RPD [Suspect]
     Route: 048
     Dates: start: 20040513, end: 20040616
  6. PROHANCE [Suspect]
     Indication: ENCEPHALITIS HERPES
     Route: 042
     Dates: start: 20040525
  7. SERENACE [Suspect]
     Indication: ENCEPHALITIS HERPES
     Route: 048
     Dates: start: 20040513, end: 20040613
  8. HALOPERIDOL [Suspect]
     Route: 048
     Dates: start: 20040503, end: 20040512
  9. SERENACE [Suspect]
     Route: 048
     Dates: start: 20040614, end: 20040617
  10. HALOPERIDOL [Suspect]
     Route: 048
     Dates: start: 20040426, end: 20040502
  11. LEVOMEPROMAZINE [Suspect]
     Indication: ENCEPHALITIS HERPES
     Route: 048
     Dates: start: 20040428, end: 20040429
  12. LEVOMEPROMAZINE [Suspect]
     Route: 048
     Dates: start: 20040430, end: 20040506
  13. LEVOMEPROMAZINE [Suspect]
     Route: 048
     Dates: start: 20040507, end: 20040512
  14. LEVOMEPROMAZINE [Suspect]
     Route: 048
     Dates: start: 20040513, end: 20040625
  15. ALEVIATIN [Suspect]
     Indication: ENCEPHALITIS HERPES
     Route: 048
     Dates: start: 20040428, end: 20040625
  16. ALEVIATIN [Suspect]
     Route: 048
     Dates: start: 20040426, end: 20040427
  17. SEROQUEL [Suspect]
     Indication: ENCEPHALITIS HERPES
     Route: 048
     Dates: start: 20040517, end: 20040501
  18. SEROQUEL [Suspect]
     Route: 048
     Dates: start: 20040520, end: 20040617
  19. ARASENA-A [Suspect]
     Indication: ENCEPHALITIS HERPES
     Route: 042
     Dates: start: 20040521, end: 20040530

REACTIONS (3)
  - DRUG ERUPTION [None]
  - LIVER DISORDER [None]
  - LYMPHOCYTE STIMULATION TEST POSITIVE [None]
